FAERS Safety Report 4546727-2 (Version None)
Quarter: 2005Q1

REPORT INFORMATION
  Report Type: 
  Country: None (occurrence: None)
  Receive Date: 20050105
  Receipt Date: 20041229
  Transmission Date: 20050727
  Serious: Yes (Other)
  Sender: FDA-Public Use
  Company Number: 2004121752

PATIENT
  Sex: Female

DRUGS (2)
  1. DEPO-PROVERA [Suspect]
     Indication: CONTRACEPTION
     Dosage: 150 MG (150 MG, 1ST INJECTION, EVERY TRIMESTRAL), INTRAMUSCULAR
     Route: 030
     Dates: start: 20031128, end: 20031128
  2. OMEPRAZOLE [Concomitant]

REACTIONS (1)
  - HEPATIC STEATOSIS [None]
